FAERS Safety Report 5660732-4 (Version None)
Quarter: 2008Q1

REPORT INFORMATION
  Report Type: 
  Country: None (occurrence: None)
  Receive Date: 20080311
  Receipt Date: 20080227
  Transmission Date: 20080703
  Serious: Yes (Other)
  Sender: FDA-Public Use
  Company Number: BE-BAYER-200814128GPV

PATIENT
  Age: 60 Year
  Sex: Male

DRUGS (6)
  1. ALEMTUZUMAB [Suspect]
     Indication: INTESTINAL T-CELL LYMPHOMA RECURRENT
     Route: 065
  2. ALEMTUZUMAB [Suspect]
     Route: 065
  3. METHOTREXATE [Suspect]
     Indication: INTESTINAL T-CELL LYMPHOMA RECURRENT
     Route: 065
  4. METHOTREXATE [Suspect]
     Route: 065
  5. METHOTREXATE [Suspect]
     Route: 065
  6. ASPARAGINASE [Suspect]
     Indication: INTESTINAL T-CELL LYMPHOMA RECURRENT
     Route: 065

REACTIONS (2)
  - CYTOMEGALOVIRUS INFECTION [None]
  - THROMBOCYTOPENIA [None]
